FAERS Safety Report 25608674 (Version 1)
Quarter: 2025Q3

REPORT INFORMATION
  Report Type: Spontaneous
  Country: US (occurrence: US)
  Receive Date: 20250726
  Receipt Date: 20250726
  Transmission Date: 20251021
  Serious: Yes (Hospitalization)
  Sender: ZYDUS PHARM
  Company Number: US-CADILA HEALTHCARE LIMITED-US-ZYDUS-126471

PATIENT

DRUGS (4)
  1. METHYLPREDNISOLONE [Suspect]
     Active Substance: METHYLPREDNISOLONE
     Indication: Autoimmune hepatitis
     Route: 065
  2. AMANTADINE [Suspect]
     Active Substance: AMANTADINE
     Indication: Catatonia
     Route: 065
  3. MEMANTINE [Suspect]
     Active Substance: MEMANTINE
     Indication: Catatonia
     Route: 065
  4. RISPERIDONE [Concomitant]
     Active Substance: RISPERIDONE
     Indication: Product used for unknown indication
     Route: 065

REACTIONS (2)
  - Catatonia [Recovering/Resolving]
  - Off label use [Unknown]
